FAERS Safety Report 8024850-8 (Version None)
Quarter: 2012Q1

REPORT INFORMATION
  Report Type: 
  Country: None (occurrence: None)
  Receive Date: 20120103
  Receipt Date: 20111219
  Transmission Date: 20120608
  Serious: Yes (Death, Life-Threatening, Other)
  Sender: FDA-Public Use
  Company Number: 2011MA017785

PATIENT
  Age: 26 Year
  Sex: Male

DRUGS (2)
  1. PAREGORIC LIQUID USP (ALPHARMA) (PAREGORIC) [Suspect]
     Indication: OVERDOSE
  2. HEROIN (DIAMORPHINE) [Suspect]
     Indication: OVERDOSE

REACTIONS (6)
  - CARDIAC FAILURE [None]
  - OVERDOSE [None]
  - TOXICITY TO VARIOUS AGENTS [None]
  - VENTRICULAR DYSFUNCTION [None]
  - DRUG ABUSE [None]
  - PULMONARY OEDEMA [None]
